FAERS Safety Report 15620549 (Version 1)
Quarter: 2018Q4

REPORT INFORMATION
  Report Type: Other
  Country: GB (occurrence: GB)
  Receive Date: 20181115
  Receipt Date: 20181115
  Transmission Date: 20190205
  Serious: Yes (Other)
  Sender: FDA-Public Use
  Company Number: GB-CELLTRION INC.-2018GB023708

PATIENT

DRUGS (4)
  1. INFLIXIMAB (UNKNOWN) [Suspect]
     Active Substance: INFLIXIMAB
     Dosage: 450 MG (5 MG/KG)
     Route: 042
     Dates: start: 20180807, end: 20180807
  2. HYDROCORTISONE. [Concomitant]
     Active Substance: HYDROCORTISONE
     Dosage: 100 MG, STAT DOSE PRIOR TO INFLIXIMAB INFUSION
  3. PREDNISOLONE. [Concomitant]
     Active Substance: PREDNISOLONE
  4. INFLIXIMAB (UNKNOWN) [Suspect]
     Active Substance: INFLIXIMAB
     Indication: CROHN^S DISEASE
     Dosage: 450 MG (5 MG/KG)
     Route: 042
     Dates: start: 20180121, end: 20180121

REACTIONS (4)
  - Crohn^s disease [Recovered/Resolved]
  - Incorrect dose administered [Unknown]
  - Arthralgia [Recovered/Resolved]
  - Back pain [Recovered/Resolved]

NARRATIVE: CASE EVENT DATE: 20180814
